FAERS Safety Report 9701144 (Version 1)
Quarter: 2013Q4

REPORT INFORMATION
  Report Type: Spontaneous
  Country: US (occurrence: US)
  Receive Date: 20131121
  Receipt Date: 20131121
  Transmission Date: 20140711
  Serious: No
  Sender: FDA-Public Use
  Company Number: US-GILEAD-2008-0015766

PATIENT
  Sex: Female

DRUGS (7)
  1. LETAIRIS [Suspect]
  2. ACIPHEX [Concomitant]
  3. ATENOLOL [Concomitant]
  4. SYNTHROID [Concomitant]
  5. ASPIRIN [Concomitant]
  6. IRON [Concomitant]
  7. MULTIVITAMIN [Concomitant]

REACTIONS (1)
  - Fluid retention [Recovered/Resolved]
